FAERS Safety Report 7604736-0 (Version None)
Quarter: 2011Q3

REPORT INFORMATION
  Report Type: 
  Country: None (occurrence: None)
  Receive Date: 20110712
  Receipt Date: 20110629
  Transmission Date: 20111222
  Serious: No
  Sender: FDA-Public Use
  Company Number: US-B.I. PHARMACEUTICALS,INC./RIDGEFIELD-2011-BP-16615BP

PATIENT
  Sex: Male

DRUGS (14)
  1. GABAPENTIN [Concomitant]
     Indication: NEUROPATHY PERIPHERAL
  2. ASPIRIN [Concomitant]
     Indication: HYPERTENSION
  3. VIT E [Concomitant]
     Indication: MACULAR DEGENERATION
  4. VIT C [Concomitant]
     Indication: MACULAR DEGENERATION
  5. PEPCID [Concomitant]
     Indication: DYSPEPSIA
  6. FLOMAX [Suspect]
     Indication: BENIGN PROSTATIC HYPERPLASIA
     Dosage: 0.4 MG
     Route: 048
     Dates: start: 19980101
  7. ZINC [Concomitant]
     Indication: MACULAR DEGENERATION
  8. VITAMIN TAB [Concomitant]
  9. GLYBURIDE [Suspect]
     Indication: DIABETES MELLITUS
  10. VIT D [Concomitant]
     Indication: MACULAR DEGENERATION
  11. LUTEIN [Concomitant]
     Indication: MACULAR DEGENERATION
  12. METOPROLOL TARTRATE [Concomitant]
     Indication: HYPERTENSION
  13. BETA CAROTENE [Concomitant]
     Indication: MACULAR DEGENERATION
  14. FLUNISOLIDE [Concomitant]
     Indication: NASAL CONGESTION

REACTIONS (2)
  - DYSURIA [None]
  - POLLAKIURIA [None]
